FAERS Safety Report 12896570 (Version 1)
Quarter: 2016Q4

REPORT INFORMATION
  Report Type: Spontaneous
  Country: US (occurrence: US)
  Receive Date: 20161028
  Receipt Date: 20161028
  Transmission Date: 20170207
  Serious: No
  Sender: FDA-Public Use
  Company Number: None

PATIENT
  Age: 32 Year
  Sex: Female
  Weight: 54 kg

DRUGS (5)
  1. CLARITIN [Concomitant]
     Active Substance: LORATADINE
  2. PRILOSEC [Concomitant]
     Active Substance: OMEPRAZOLE MAGNESIUM
  3. PHILLIPS COLON HEALTH PROBIOTICS [Concomitant]
  4. DAILY VITAMIN [Concomitant]
     Active Substance: VITAMINS
  5. DROSPIRENONE-ETHINYL ES GLENMARK [Suspect]
     Active Substance: DROSPIRENONE\ETHINYL ESTRADIOL
     Indication: CONTRACEPTION
     Dosage: ?          QUANTITY:1 TABLET(S);?
     Route: 048

REACTIONS (4)
  - Product substitution issue [None]
  - Depression [None]
  - Condition aggravated [None]
  - Irritability [None]

NARRATIVE: CASE EVENT DATE: 20160801
